FAERS Safety Report 4861772-5 (Version None)
Quarter: 2005Q4

REPORT INFORMATION
  Report Type: 
  Country: None (occurrence: None)
  Receive Date: 20051220
  Receipt Date: 20051212
  Transmission Date: 20060501
  Serious: Yes (Life-Threatening, Hospitalization)
  Sender: FDA-Public Use
  Company Number: AE-MERCK-0512USA02173

PATIENT
  Age: 5 Year
  Sex: Male
  Weight: 18 kg

DRUGS (2)
  1. SINGULAIR [Suspect]
     Indication: ASTHMA
     Route: 048
     Dates: start: 20051116, end: 20051122
  2. COMBIVENT [Concomitant]
     Indication: ASTHMA
     Route: 055
     Dates: start: 20050410, end: 20051116

REACTIONS (4)
  - ABDOMINAL PAIN [None]
  - BREATH HOLDING [None]
  - CHEST PAIN [None]
  - HEADACHE [None]
